FAERS Safety Report 5602208-6 (Version None)
Quarter: 2008Q1

REPORT INFORMATION
  Report Type: 
  Country: None (occurrence: None)
  Receive Date: 20080125
  Receipt Date: 20080118
  Transmission Date: 20080703
  Serious: Yes (Death, Hospitalization, Other)
  Sender: FDA-Public Use
  Company Number: GB-JNJFOC-20060305290

PATIENT
  Sex: Female
  Weight: 71 kg

DRUGS (13)
  1. REMICADE [Suspect]
     Indication: RHEUMATOID ARTHRITIS
     Route: 042
  2. METHOTREXATE [Concomitant]
     Route: 065
  3. PREDNISOLONE [Concomitant]
     Route: 065
  4. AMITRIPTYLINE HCL [Concomitant]
     Route: 065
  5. CO-PROXAMOL [Concomitant]
     Route: 065
  6. FOLIC ACID [Concomitant]
     Route: 065
  7. RANITIDINE [Concomitant]
     Route: 065
  8. RISEDRONATE SODIUM [Concomitant]
     Route: 065
  9. LEVOTHYROXINE SODIUM [Concomitant]
     Route: 065
  10. ORAMORPH SR [Concomitant]
  11. INFUMORPH [Concomitant]
  12. METOCLOPRAMIDE [Concomitant]
  13. LANSOPRAZOLE [Concomitant]

REACTIONS (2)
  - BRONCHOPNEUMONIA [None]
  - OESOPHAGEAL CANCER METASTATIC [None]
